FAERS Safety Report 4629869-2 (Version None)
Quarter: 2005Q2

REPORT INFORMATION
  Report Type: 
  Country: None (occurrence: None)
  Receive Date: 20050407
  Receipt Date: 20050325
  Transmission Date: 20051028
  Serious: Yes (Hospitalization)
  Sender: FDA-Public Use
  Company Number: 2005049828

PATIENT
  Age: 70 Year
  Sex: Male

DRUGS (5)
  1. CEFPODOXIME PROXETIL [Suspect]
     Indication: URINARY TRACT INFECTION
     Dosage: 200 MG (DAILY), ORAL
     Route: 048
     Dates: start: 20050304, end: 20050307
  2. EDARAVONE (EDARAVONE) [Suspect]
     Indication: CEREBRAL INFARCTION
     Dosage: 60 MG (DAILY), INTRAVENOUS
     Route: 042
     Dates: start: 20050222, end: 20050225
  3. LEVOTHYROXINE SODIUM [Concomitant]
  4. FAMOTIDINE [Concomitant]
  5. ASPIRIN [Concomitant]

REACTIONS (3)
  - BENIGN PROSTATIC HYPERPLASIA [None]
  - RENAL FAILURE [None]
  - URINARY RETENTION [None]
